FAERS Safety Report 8719951 (Version 4)
Quarter: 2015Q4

REPORT INFORMATION
  Report Type: Spontaneous
  Country: US (occurrence: US)
  Receive Date: 20120813
  Receipt Date: 20151124
  Transmission Date: 20160305
  Serious: Yes (Hospitalization, Disabling, Other)
  Sender: FDA-Public Use
  Company Number: US-BAYER-2012-079291

PATIENT
  Age: 22 Year
  Sex: Female
  Weight: 61.68 kg

DRUGS (15)
  1. GIANVI [Suspect]
     Active Substance: DROSPIRENONE\ETHINYL ESTRADIOL
     Indication: CONTRACEPTION
  2. EPIPEN [Concomitant]
     Active Substance: EPINEPHRINE
     Dosage: UNK UNK, PRN
  3. VANCOMYCIN [Concomitant]
     Active Substance: VANCOMYCIN
     Indication: BACTERAEMIA
  4. REQUIP [Concomitant]
     Active Substance: ROPINIROLE HYDROCHLORIDE
     Dosage: UNK
  5. ATROVENT [Concomitant]
     Active Substance: IPRATROPIUM BROMIDE
  6. VANCOMYCIN [Concomitant]
     Active Substance: VANCOMYCIN
     Indication: STAPHYLOCOCCAL SEPSIS
  7. AZITHROMYCIN [Concomitant]
     Active Substance: AZITHROMYCIN ANHYDROUS
     Dosage: 250 MG, TAB UNK
     Dates: start: 20100930
  8. ZOSYN [Concomitant]
     Active Substance: PIPERACILLIN SODIUM\TAZOBACTAM SODIUM
  9. YAZ [Suspect]
     Active Substance: DROSPIRENONE\ETHINYL ESTRADIOL
     Indication: ACNE
  10. CHLORPHEN.MA.W/PHENYLEPH.HCL/DEX.METHORP.HBR [Concomitant]
     Dosage: UNK
     Dates: start: 20100930
  11. LEXAPRO [Concomitant]
     Active Substance: ESCITALOPRAM OXALATE
  12. GIANVI [Suspect]
     Active Substance: DROSPIRENONE\ETHINYL ESTRADIOL
     Indication: ACNE
     Dosage: UNK
     Dates: start: 201006, end: 201010
  13. YAZ [Suspect]
     Active Substance: DROSPIRENONE\ETHINYL ESTRADIOL
     Indication: CONTRACEPTION
     Dosage: UNK
     Dates: start: 201005, end: 201006
  14. ALBUTEROL. [Concomitant]
     Active Substance: ALBUTEROL
  15. NARCAN [Concomitant]
     Active Substance: NALOXONE HYDROCHLORIDE

REACTIONS (21)
  - General physical health deterioration [None]
  - Hearing impaired [None]
  - Aphasia [None]
  - Brain compression [None]
  - Cerebellar infarction [None]
  - Myocardial infarction [None]
  - Injury [None]
  - Paraplegia [None]
  - Quadriplegia [None]
  - Activities of daily living impaired [None]
  - Hemiplegia [None]
  - Cerebrovascular accident [None]
  - Pain [None]
  - Emotional distress [None]
  - Intestinal resection [None]
  - Dysarthria [None]
  - Mental impairment [None]
  - Visual impairment [None]
  - Anxiety [None]
  - Apallic syndrome [None]
  - Cognitive disorder [None]

NARRATIVE: CASE EVENT DATE: 20101020
